FAERS Safety Report 12253481 (Version 1)
Quarter: 2016Q2

REPORT INFORMATION
  Report Type: Spontaneous
  Country: JP (occurrence: JP)
  Receive Date: 20160411
  Receipt Date: 20160411
  Transmission Date: 20160815
  Serious: Yes (Hospitalization)
  Sender: FDA-Public Use
  Company Number: JP-ABBVIE-16P-087-1588994-00

PATIENT
  Age: 83 Year
  Sex: Female

DRUGS (1)
  1. VIEKIRAX [Suspect]
     Active Substance: OMBITASVIR\PARITAPREVIR\RITONAVIR
     Indication: HEPATIC CIRRHOSIS
     Dosage: 2 DOAGE FORMS DAILY
     Route: 048
     Dates: start: 20160310, end: 20160312

REACTIONS (5)
  - Renal disorder [Recovered/Resolved]
  - Decreased appetite [Unknown]
  - Vomiting [Unknown]
  - Oedema [Recovered/Resolved]
  - Dehydration [Unknown]

NARRATIVE: CASE EVENT DATE: 20160312
